FAERS Safety Report 21186735 (Version 6)
Quarter: 2022Q3

REPORT INFORMATION
  Report Type: Spontaneous
  Country: US (occurrence: US)
  Receive Date: 20220808
  Receipt Date: 20220914
  Transmission Date: 20221027
  Serious: Yes (Hospitalization, Other)
  Sender: FDA-Public Use
  Company Number: US-PFIZER INC-202201037945

PATIENT
  Age: 78 Year
  Sex: Female
  Weight: 79.378 kg

DRUGS (7)
  1. DEPO-ESTRADIOL [Suspect]
     Active Substance: ESTRADIOL CYPIONATE
     Indication: Hormone replacement therapy
     Dosage: 1 ML, EVERY 3 WEEKS (EVERY THREE WEEKS DISCARD REMAINDER AFTER 30 DAYS)
     Route: 030
  2. DEPO-ESTRADIOL [Suspect]
     Active Substance: ESTRADIOL CYPIONATE
     Indication: Asthenia
     Dosage: 1 MG, 1X/DAY
     Dates: start: 1980
  3. DEPO-ESTRADIOL [Suspect]
     Active Substance: ESTRADIOL CYPIONATE
     Indication: Fatigue
  4. SYNTHROID [Suspect]
     Active Substance: LEVOTHYROXINE SODIUM
     Dosage: 25 UG, DAILY
     Dates: start: 1980
  5. GEMFIBROZIL [Suspect]
     Active Substance: GEMFIBROZIL
     Dosage: UNK, 2X/DAY (1 TWICE A DAY)
     Dates: start: 1980
  6. BISOPROLOL FUMARATE [Suspect]
     Active Substance: BISOPROLOL FUMARATE
     Dosage: UNK, DAILY
     Dates: start: 1980
  7. POTASSIUM CHLORIDE [Suspect]
     Active Substance: POTASSIUM CHLORIDE
     Dosage: UNK, 1X/DAY (1 A DAY)
     Dates: start: 1980

REACTIONS (9)
  - Uterine disorder [Not Recovered/Not Resolved]
  - Nervousness [Not Recovered/Not Resolved]
  - Headache [Not Recovered/Not Resolved]
  - Pain [Not Recovered/Not Resolved]
  - Cyst [Not Recovered/Not Resolved]
  - Confusional state [Unknown]
  - Amnesia [Not Recovered/Not Resolved]
  - Fatigue [Not Recovered/Not Resolved]
  - Off label use [Unknown]

NARRATIVE: CASE EVENT DATE: 20220701
